FAERS Safety Report 7414048-6 (Version None)
Quarter: 2011Q2

REPORT INFORMATION
  Report Type: 
  Country: None (occurrence: None)
  Receive Date: 20110414
  Receipt Date: 20110406
  Transmission Date: 20111010
  Serious: No
  Sender: FDA-Public Use
  Company Number: US-PFIZER INC-2011076626

PATIENT
  Age: 59 Year
  Sex: Female

DRUGS (5)
  1. TRAMADOL [Concomitant]
     Indication: PAIN MANAGEMENT
     Dosage: 50 MG, 4X/DAY
  2. ATARAX [Concomitant]
     Indication: ANXIETY
     Dosage: 50 MG, 1X/DAY
  3. PRISTIQ [Suspect]
     Indication: DEPRESSION
     Dosage: 50 MG, 1X/DAY
     Route: 048
     Dates: start: 20110101
  4. LEVOTHYROXINE [Concomitant]
     Indication: HYPOTHYROIDISM
     Dosage: 0.05 MG, 1X/DAY
  5. NORVASC [Concomitant]
     Indication: HYPERTENSION
     Dosage: 10 MG, 1X/DAY
     Route: 048

REACTIONS (3)
  - VOMITING [None]
  - NAUSEA [None]
  - SALIVARY HYPERSECRETION [None]
